FAERS Safety Report 8963853 (Version 2)
Quarter: 2012Q4

REPORT INFORMATION
  Report Type: 
  Country: NL (occurrence: NL)
  Receive Date: 20121214
  Receipt Date: 20121226
  Transmission Date: 20130627
  Serious: Yes (Hospitalization)
  Sender: FDA-Public Use
  Company Number: NL-MERCK-1210NLD011760

PATIENT
  Age: 57 Year
  Sex: Female

DRUGS (5)
  1. AERIUS [Suspect]
     Indication: DERMATITIS ALLERGIC
     Dosage: UNK, qd,5mg as needed
     Route: 048
     Dates: end: 20121023
  2. AERIUS [Interacting]
     Indication: PRURITUS
  3. NITROFURANTOIN [Interacting]
     Indication: CYSTITIS
     Dosage: 50 mg, qid
     Route: 048
     Dates: start: 20121022, end: 20121023
  4. HYDROCHLOROTHIAZIDE [Suspect]
     Dosage: 12.5 mg, UNK
  5. LOPRAZOLAM [Suspect]
     Dosage: once daily 1 mg

REACTIONS (12)
  - Dyspnoea [Recovered/Resolved]
  - Drug interaction [Recovered/Resolved]
  - Oxygen saturation decreased [Recovered/Resolved]
  - Hypoxia [Recovered/Resolved]
  - Rash generalised [Recovered/Resolved]
  - Palpitations [None]
  - Rash pruritic [None]
  - Heart rate increased [None]
  - Urticaria [None]
  - Blood pressure systolic increased [None]
  - Pulmonary toxicity [None]
  - Acute lung injury [None]
